FAERS Safety Report 6287901-7 (Version None)
Quarter: 2009Q3

REPORT INFORMATION
  Report Type: 
  Country: None (occurrence: None)
  Receive Date: 20090729
  Receipt Date: 20090717
  Transmission Date: 20100115
  Serious: Yes (Other)
  Sender: FDA-Public Use
  Company Number: PE-JNJFOC-20090708067

PATIENT
  Age: 51 Year
  Sex: Male

DRUGS (3)
  1. REMICADE [Suspect]
     Dosage: FOURTH INFUSION
     Route: 042
  2. REMICADE [Suspect]
     Dosage: 2 INFUSIONS ON UNSPECIFIED DATES
     Route: 042
  3. REMICADE [Suspect]
     Indication: PSORIASIS
     Dosage: FIRST INFUSION
     Route: 042

REACTIONS (3)
  - INFUSION RELATED REACTION [None]
  - SOMNOLENCE [None]
  - VISION BLURRED [None]
